FAERS Safety Report 5511657-6 (Version None)
Quarter: 2007Q4

REPORT INFORMATION
  Report Type: 
  Country: None (occurrence: None)
  Receive Date: 20071109
  Receipt Date: 20071026
  Transmission Date: 20080405
  Serious: Yes (Life-Threatening, Hospitalization, Other)
  Sender: FDA-Public Use
  Company Number: GB-RANBAXY-2007RR-11095

PATIENT

DRUGS (10)
  1. METFORMIN 500MG TABLETS [Suspect]
     Indication: DIABETES MELLITUS
     Dosage: 1 DF, QD
     Route: 048
     Dates: start: 20070101
  2. METFORMIN 500MG TABLETS [Suspect]
     Dosage: 1 DF, BID
     Route: 048
     Dates: start: 20060301
  3. METFORMIN 500MG TABLETS [Suspect]
     Dosage: 1 DF, TID
     Route: 048
     Dates: start: 20070917
  4. METFORMIN 500MG TABLETS [Suspect]
     Dosage: 2000 MG, UNK
     Route: 048
     Dates: start: 20070927, end: 20071006
  5. DISPERSIBLE ASPIRIN 75MG TABLETS BP [Concomitant]
     Indication: ANTICOAGULANT THERAPY
     Dosage: 75 MG, UNK
     Route: 048
     Dates: start: 20051204, end: 20071006
  6. ATORVASTATIN CALCIUM [Concomitant]
     Indication: HYPERCHOLESTEROLAEMIA
     Dosage: 40 MG, UNK
     Route: 048
     Dates: start: 20051204
  7. BISOPROLOL 5MG TABLETS [Concomitant]
     Dosage: 2.5 MG, UNK
     Route: 048
     Dates: start: 20051204
  8. GLICLAZIDE [Concomitant]
     Indication: DIABETES MELLITUS
     Dosage: 30 MG, UNK
     Route: 048
     Dates: start: 20051204
  9. GTN-S [Concomitant]
     Indication: CHEST PAIN
     Dosage: UNK
  10. RAMIPRIL 2.5 MG CAPSULES [Concomitant]
     Dosage: 2.5 MG, UNK
     Route: 048
     Dates: start: 20051204

REACTIONS (9)
  - ABDOMINAL PAIN [None]
  - AMNESIA [None]
  - ANOREXIA [None]
  - CARDIAC FLUTTER [None]
  - CHEST DISCOMFORT [None]
  - DYSPNOEA [None]
  - FLATULENCE [None]
  - MALAISE [None]
  - PALLOR [None]
